FAERS Safety Report 7648404-8 (Version None)
Quarter: 2011Q3

REPORT INFORMATION
  Report Type: 
  Country: None (occurrence: None)
  Receive Date: 20110801
  Receipt Date: 20110726
  Transmission Date: 20111222
  Serious: Yes (Other)
  Sender: FDA-Public Use
  Company Number: US-PFIZER INC-2011135651

PATIENT
  Sex: Female
  Weight: 60.771 kg

DRUGS (3)
  1. XALATAN [Suspect]
     Indication: INTRAOCULAR PRESSURE TEST
     Dosage: 1 GTT, 1X/DAY IN EACH EYE
     Route: 047
     Dates: start: 20080101, end: 20110701
  2. XALATAN [Suspect]
     Indication: OCULAR HYPERTENSION
  3. DIOVAN [Concomitant]
     Dosage: UNK

REACTIONS (8)
  - EYE IRRITATION [None]
  - VIRAL INFECTION [None]
  - EYE PRURITUS [None]
  - BLOOD CHOLESTEROL INCREASED [None]
  - DRUG INEFFECTIVE [None]
  - CARDIAC DISORDER [None]
  - AORTIC ANEURYSM [None]
  - OCULAR HYPERAEMIA [None]
